FAERS Safety Report 25701017 (Version 1)
Quarter: 2025Q3

REPORT INFORMATION
  Report Type: Report from Study
  Country: US (occurrence: US)
  Receive Date: 20250819
  Receipt Date: 20250819
  Transmission Date: 20251021
  Serious: Yes (Other)
  Sender: ASTELLAS
  Company Number: US-ASTELLAS-2024-AER-019928

PATIENT
  Age: 69 Year
  Sex: Male

DRUGS (2)
  1. ENFORTUMAB VEDOTIN-EJFV [Suspect]
     Active Substance: ENFORTUMAB VEDOTIN-EJFV
     Indication: Bladder cancer
     Route: 042
     Dates: start: 20240409, end: 202411
  2. KEYTRUDA [Concomitant]
     Active Substance: PEMBROLIZUMAB
     Indication: Bladder cancer
     Route: 065
     Dates: start: 20240409, end: 20241008

REACTIONS (3)
  - Pneumonitis [Unknown]
  - Dermatitis [Not Recovered/Not Resolved]
  - Dyspnoea [Recovered/Resolved]

NARRATIVE: CASE EVENT DATE: 20240401
